FAERS Safety Report 5149243-2 (Version None)
Quarter: 2006Q4

REPORT INFORMATION
  Report Type: 
  Country: None (occurrence: None)
  Receive Date: 20061113
  Receipt Date: 20050923
  Transmission Date: 20070319
  Serious: No
  Sender: FDA-Public Use
  Company Number: 419210

PATIENT
  Age: 69 Year
  Sex: Male

DRUGS (7)
  1. COREG [Suspect]
     Dosage: 12.5MG TWICE PER DAY
     Route: 048
     Dates: start: 20050901
  2. LISINOPRIL [Concomitant]
  3. AMITRIPTYLINE HCL [Concomitant]
  4. NEXIUM [Concomitant]
  5. TERAZOSIN HCL [Concomitant]
  6. VITAMIN [Concomitant]
  7. TYLENOL [Concomitant]

REACTIONS (1)
  - MEDICATION ERROR [None]
